FAERS Safety Report 6626353-1 (Version None)
Quarter: 2010Q1

REPORT INFORMATION
  Report Type: 
  Country: None (occurrence: None)
  Receive Date: 20100309
  Receipt Date: 20100309
  Transmission Date: 20100710
  Serious: Yes (Hospitalization)
  Sender: FDA-Public Use
  Company Number: None

PATIENT
  Sex: Female
  Weight: 71 kg

DRUGS (2)
  1. TAXOL [Suspect]
     Dosage: 140 MG
  2. HERCEPTIN [Suspect]
     Dosage: 144 MG

REACTIONS (1)
  - NEUTROPHIL COUNT DECREASED [None]
